FAERS Safety Report 8290567 (Version 2)
Quarter: 2013Q2

REPORT INFORMATION
  Report Type: Spontaneous
  Country: US (occurrence: None)
  Receive Date: 20111122
  Receipt Date: 20130107
  Transmission Date: 20140414
  Serious: No
  Sender: FDA-Public Use
  Company Number: PHEH2011US02563

PATIENT
  Age: 36 Year
  Sex: Female
  Weight: 69.4 kg

DRUGS (1)
  1. GILENYA [Suspect]
     Indication: MULTIPLE SCLEROSIS
     Dosage: 0.5 MG, QD, ORAL
     Route: 048
     Dates: start: 20110804

REACTIONS (2)
  - DEPRESSION [None]
  - HYPOAESTHESIA [None]
